FAERS Safety Report 15478535 (Version 1)
Quarter: 2018Q4

REPORT INFORMATION
  Report Type: Spontaneous
  Country: US (occurrence: US)
  Receive Date: 20181003
  Receipt Date: 20181003
  Transmission Date: 20190205
  Serious: Yes (Disabling)
  Sender: FDA-Public Use
  Company Number: None

PATIENT
  Age: 51 Year
  Sex: Female
  Weight: 42.75 kg

DRUGS (2)
  1. MELATONIN [Concomitant]
     Active Substance: MELATONIN
  2. MEFLOQUINE HCL [Suspect]
     Active Substance: MEFLOQUINE
     Indication: MALARIA
     Dosage: ?          QUANTITY:1 DF DOSAGE FORM;?
     Route: 048
     Dates: start: 20130301, end: 20131228

REACTIONS (10)
  - Weight decreased [None]
  - Tremor [None]
  - Irritable bowel syndrome [None]
  - Vertigo [None]
  - Aphasia [None]
  - Suicidal ideation [None]
  - Headache [None]
  - Dysphagia [None]
  - Amnesia [None]
  - Visual impairment [None]

NARRATIVE: CASE EVENT DATE: 20130901
